FAERS Safety Report 6805003-5 (Version None)
Quarter: 2010Q2

REPORT INFORMATION
  Report Type: 
  Country: None (occurrence: None)
  Receive Date: 20100628
  Receipt Date: 20070726
  Transmission Date: 20101027
  Serious: Yes (Other)
  Sender: FDA-Public Use
  Company Number: US-PFIZER INC-2007062215

PATIENT
  Age: 37 Year
  Sex: Male

DRUGS (4)
  1. GEODON [Suspect]
     Dates: start: 20061001
  2. LITHIUM [Concomitant]
  3. ATIVAN [Concomitant]
  4. PAXIL [Concomitant]

REACTIONS (1)
  - EXTRAPYRAMIDAL DISORDER [None]
